FAERS Safety Report 4838133-8 (Version None)
Quarter: 2005Q4

REPORT INFORMATION
  Report Type: 
  Country: None (occurrence: None)
  Receive Date: 20051114
  Receipt Date: 20051102
  Transmission Date: 20060501
  Serious: Yes (Other)
  Sender: FDA-Public Use
  Company Number: 200510684BFR

PATIENT
  Sex: Male

DRUGS (7)
  1. KOGENATE FS [Suspect]
     Dosage: SEE IMAGE
     Route: 042
     Dates: start: 20030101
  2. KOGENATE FS [Suspect]
  3. KOGENATE FS [Suspect]
  4. KOGENATE FS [Suspect]
  5. KOGENATE [Suspect]
     Dosage: SEE IMAGE
     Route: 042
     Dates: start: 19970101
  6. . [Concomitant]
  7. KOGENATE [Suspect]

REACTIONS (2)
  - SEROCONVERSION TEST POSITIVE [None]
  - VIRAL HEPATITIS CARRIER [None]
